FAERS Safety Report 4636031-6 (Version None)
Quarter: 2005Q2

REPORT INFORMATION
  Report Type: 
  Country: None (occurrence: None)
  Receive Date: 20050325
  Receipt Date: 20041220
  Transmission Date: 20051028
  Serious: No
  Sender: FDA-Public Use
  Company Number: USA041286669

PATIENT
  Age: 75 Year
  Sex: Female

DRUGS (14)
  1. FORTEO [Suspect]
     Indication: OSTEOPOROSIS
     Dates: start: 20041208
  2. SALINE (SODIUM CHLORIDE) [Suspect]
  3. DICLOFENAC SODIUM [Concomitant]
  4. PRILOSEC (OMEPRAZOLE RATIOPHARM) [Concomitant]
  5. MIACALCIN (CALCIONIN, SALMON) [Concomitant]
  6. LOTREL [Concomitant]
  7. ATENOLOL [Concomitant]
  8. DITROPAN [Concomitant]
  9. CALCIUM GLUCONATE [Concomitant]
  10. CENTRUM PERFORMANCE MULTIVITAMIN [Concomitant]
  11. CODEINE [Concomitant]
  12. GLUCOSAMINE [Concomitant]
  13. CHONDROITIN SULFARE [Concomitant]
  14. VITAMIN E [Concomitant]

REACTIONS (1)
  - MEDICATION ERROR [None]
